FAERS Safety Report 17181991 (Version 2)
Quarter: 2020Q1

REPORT INFORMATION
  Report Type: Spontaneous
  Country: IT (occurrence: IT)
  Receive Date: 20191220
  Receipt Date: 20200107
  Transmission Date: 20200409
  Serious: Yes (Hospitalization, Other)
  Sender: FDA-Public Use
  Company Number: IT-ROCHE-2497069

PATIENT
  Age: 54 Year
  Sex: Male

DRUGS (4)
  1. DELTACORTENE [Suspect]
     Active Substance: PREDNISONE
     Indication: RENAL TRANSPLANT
  2. MYCOPHENOLATE MOFETIL. [Suspect]
     Active Substance: MYCOPHENOLATE MOFETIL
     Indication: IMMUNOSUPPRESSION
     Dosage: UNK
     Route: 065
  3. DELTACORTENE [Suspect]
     Active Substance: PREDNISONE
     Indication: IMMUNOSUPPRESSANT DRUG THERAPY
     Dosage: 5 MG, QD
     Route: 065
  4. CICLOSPORIN [Suspect]
     Active Substance: CYCLOSPORINE
     Indication: IMMUNOSUPPRESSION
     Dosage: UNK
     Route: 065

REACTIONS (6)
  - Vomiting [Recovering/Resolving]
  - Abdominal pain upper [Recovered/Resolved]
  - Unmasking of previously unidentified disease [Unknown]
  - Nausea [Recovering/Resolving]
  - Metabolic alkalosis [Recovered/Resolved]
  - Hypotension [Recovering/Resolving]
